FAERS Safety Report 12080542 (Version 1)
Quarter: 2016Q1

REPORT INFORMATION
  Report Type: Spontaneous
  Country: US (occurrence: None)
  Receive Date: 20160212
  Receipt Date: 20160212
  Transmission Date: 20160526
  Serious: No
  Sender: FDA-Public Use
  Company Number: None

PATIENT
  Age: 66 Year
  Sex: Male

DRUGS (3)
  1. BORTEZOMIB [Suspect]
     Active Substance: BORTEZOMIB
  2. DEXAMETHASONE. [Suspect]
     Active Substance: DEXAMETHASONE
  3. LENALIDOMIDE [Suspect]
     Active Substance: LENALIDOMIDE

REACTIONS (7)
  - Acute myocardial infarction [None]
  - Diarrhoea [None]
  - Constipation [None]
  - Hypotension [None]
  - Nausea [None]
  - Vomiting [None]
  - Thrombocytopenia [None]

NARRATIVE: CASE EVENT DATE: 20160119
